FAERS Safety Report 9022530 (Version 1)
Quarter: 2013Q1

REPORT INFORMATION
  Report Type: Spontaneous
  Country: US (occurrence: US)
  Receive Date: 20130118
  Receipt Date: 20130118
  Transmission Date: 20140127
  Serious: No
  Sender: FDA-Public Use
  Company Number: US-GLAXOSMITHKLINE-A0959330A

PATIENT
  Age: 89 Year
  Sex: Female

DRUGS (4)
  1. PROMACTA [Suspect]
     Indication: PLATELET COUNT DECREASED
     Dosage: 50MG PER DAY
     Route: 048
     Dates: start: 20111130, end: 20111226
  2. AMLODIPINE [Concomitant]
  3. BYSTOLIC [Concomitant]
  4. TYLENOL [Concomitant]

REACTIONS (2)
  - Headache [Recovered/Resolved]
  - Blood pressure increased [Unknown]
